FAERS Safety Report 18964935 (Version 2)
Quarter: 2021Q1

REPORT INFORMATION
  Report Type: Spontaneous
  Country: PL (occurrence: PL)
  Receive Date: 20210303
  Receipt Date: 20210318
  Transmission Date: 20210420
  Serious: Yes (Hospitalization, Other)
  Sender: FDA-Public Use
  Company Number: NVSC2020PL310827

PATIENT
  Sex: Male

DRUGS (1)
  1. KYMRIAH [Suspect]
     Active Substance: TISAGENLECLEUCEL
     Indication: PRODUCT USED FOR UNKNOWN INDICATION
     Dosage: UNK (2.6 X 10 (6)
     Route: 065
     Dates: start: 20201109

REACTIONS (4)
  - B-cell aplasia [Unknown]
  - Serum ferritin increased [Unknown]
  - Chimerism [Unknown]
  - Asymptomatic COVID-19 [Recovered/Resolved]
